FAERS Safety Report 7009953-9 (Version None)
Quarter: 2010Q3

REPORT INFORMATION
  Report Type: 
  Country: None (occurrence: None)
  Receive Date: 20100909
  Receipt Date: 20100615
  Transmission Date: 20110219
  Serious: Yes (Other)
  Sender: FDA-Public Use
  Company Number: 2010SP033986

PATIENT
  Age: 40 Year
  Sex: Female

DRUGS (3)
  1. SAPHRIS [Suspect]
     Indication: AFFECTIVE DISORDER
     Dosage: 10 MG ; BID ; SL
     Route: 060
  2. SAPHRIS [Suspect]
     Indication: SCHIZOPHRENIA
     Dosage: 10 MG ; BID ; SL
     Route: 060
  3. ZYPREXA [Concomitant]

REACTIONS (3)
  - HYPERSOMNIA [None]
  - MANIA [None]
  - ORAL DISCOMFORT [None]
